FAERS Safety Report 4372197-3 (Version None)
Quarter: 2004Q2

REPORT INFORMATION
  Report Type: 
  Country: None (occurrence: None)
  Receive Date: 20040607
  Receipt Date: 20040528
  Transmission Date: 20050107
  Serious: Yes (Hospitalization)
  Sender: FDA-Public Use
  Company Number: 2004/00572

PATIENT
  Sex: Female

DRUGS (2)
  1. AMOXICILLIN AND CLAVULANATE POTASSIUM [Suspect]
     Dosage: 2G PER DAY
     Route: 048
     Dates: start: 20040524, end: 20040524
  2. ACETYLCYSTEINE [Concomitant]
     Route: 048
     Dates: start: 20040524, end: 20040524

REACTIONS (2)
  - CIRCULATORY COLLAPSE [None]
  - HYPERSENSITIVITY [None]
